FAERS Safety Report 21961742 (Version 3)
Quarter: 2023Q1

REPORT INFORMATION
  Report Type: Spontaneous
  Country: US (occurrence: US)
  Receive Date: 20230207
  Receipt Date: 20230309
  Transmission Date: 20230417
  Serious: No
  Sender: FDA-Public Use
  Company Number: US-UNITED THERAPEUTICS-UNT-2023-003074

PATIENT
  Age: 65 Year
  Sex: Female
  Weight: 61.224 kg

DRUGS (7)
  1. ORENITRAM [Suspect]
     Active Substance: TREPROSTINIL
     Indication: Pulmonary arterial hypertension
     Dosage: 0.125 MG, Q8H
     Route: 048
     Dates: start: 202302, end: 202302
  2. ORENITRAM [Suspect]
     Active Substance: TREPROSTINIL
     Dosage: 2.5 MG, Q8H
     Route: 048
     Dates: start: 202302
  3. ORENITRAM [Suspect]
     Active Substance: TREPROSTINIL
     Dosage: UNK
     Route: 048
     Dates: start: 20230202
  4. ORENITRAM [Suspect]
     Active Substance: TREPROSTINIL
     Indication: Pulmonary arterial hypertension
     Dosage: UNK
     Route: 048
  5. ORENITRAM [Suspect]
     Active Substance: TREPROSTINIL
     Indication: Pulmonary arterial hypertension
     Dosage: UNK
     Route: 048
  6. OPSUMIT [Suspect]
     Active Substance: MACITENTAN
     Indication: Product used for unknown indication
     Dosage: UNK
     Route: 065
  7. SILDENAFIL CITRATE [Concomitant]
     Active Substance: SILDENAFIL CITRATE
     Indication: Product used for unknown indication
     Dosage: UNK
     Route: 065

REACTIONS (19)
  - Headache [Recovering/Resolving]
  - Back pain [Recovering/Resolving]
  - Neck pain [Recovering/Resolving]
  - Malaise [Unknown]
  - Gait inability [Unknown]
  - Decreased activity [Unknown]
  - Product dose omission issue [Unknown]
  - Eye pain [Recovering/Resolving]
  - Musculoskeletal pain [Recovering/Resolving]
  - Dyspnoea [Unknown]
  - Heart rate increased [Unknown]
  - Chest discomfort [Unknown]
  - Nausea [Unknown]
  - Fatigue [Unknown]
  - Presyncope [Not Recovered/Not Resolved]
  - Respiratory tract congestion [Unknown]
  - Weight increased [Unknown]
  - Abdominal distension [Unknown]
  - Asthenia [Unknown]

NARRATIVE: CASE EVENT DATE: 20230201
